FAERS Safety Report 22178395 (Version 1)
Quarter: 2023Q2

REPORT INFORMATION
  Report Type: Spontaneous
  Country: FR (occurrence: FR)
  Receive Date: 20230405
  Receipt Date: 20230405
  Transmission Date: 20230721
  Serious: Yes (Hospitalization, Other)
  Sender: FDA-Public Use
  Company Number: FR-009507513-2304FRA000453

PATIENT
  Sex: Male
  Weight: 69.9 kg

DRUGS (1)
  1. DELSTRIGO [Suspect]
     Active Substance: DORAVIRINE\LAMIVUDINE\TENOFOVIR DISOPROXIL FUMARATE
     Dosage: UNK
     Dates: start: 202207

REACTIONS (11)
  - Intestinal obstruction [Unknown]
  - Mobility decreased [Unknown]
  - Nerve injury [Unknown]
  - Bone demineralisation [Unknown]
  - Drug ineffective [Unknown]
  - Decreased appetite [Unknown]
  - Hypersomnia [Unknown]
  - Decreased interest [Unknown]
  - Bone density decreased [Unknown]
  - Dizziness [Unknown]
  - Diarrhoea [Unknown]
